FAERS Safety Report 23653960 (Version 1)
Quarter: 2024Q1

REPORT INFORMATION
  Report Type: Spontaneous
  Country: FR (occurrence: FR)
  Receive Date: 20240320
  Receipt Date: 20240320
  Transmission Date: 20240410
  Serious: Yes (Hospitalization, Other)
  Sender: FDA-Public Use
  Company Number: FR-EMA-DD-20181012-hv_a-112815

PATIENT
  Age: 48 Year
  Sex: Female
  Weight: 72 kg

DRUGS (11)
  1. HYDROCORTISONE [Suspect]
     Active Substance: HYDROCORTISONE
     Indication: Product used for unknown indication
     Dosage: 20 MG, QD
     Route: 065
  2. ESOMEPRAZOLE [Suspect]
     Active Substance: ESOMEPRAZOLE
     Indication: Product used for unknown indication
     Dosage: UNK
     Route: 048
  3. KETAMINE [Suspect]
     Active Substance: KETAMINE
     Indication: Product used for unknown indication
     Dosage: 50 MG, QMO
     Route: 042
     Dates: start: 201410, end: 201411
  4. KETAMINE [Suspect]
     Active Substance: KETAMINE
     Dosage: 50 MG, QMO50MG EN JUILLET 2014, OCTOBRE 2014, NOVEMBRE 2014
     Route: 042
     Dates: start: 201407, end: 201407
  5. KETAMINE [Suspect]
     Active Substance: KETAMINE
     Dosage: 50.000MG
     Route: 042
     Dates: start: 201411
  6. KETAMINE [Suspect]
     Active Substance: KETAMINE
     Dosage: 70 MG, QMO
     Route: 042
     Dates: start: 201501, end: 201502
  7. KETAMINE [Suspect]
     Active Substance: KETAMINE
     Dosage: 70.000MG
     Route: 042
     Dates: start: 201502
  8. LERCANIDIPINE [Suspect]
     Active Substance: LERCANIDIPINE
     Indication: Product used for unknown indication
     Dosage: 10 MG, 1X/DAY
     Route: 065
  9. LYRICA [Suspect]
     Active Substance: PREGABALIN
     Indication: Product used for unknown indication
     Dosage: 20 MG, QD
     Route: 048
     Dates: start: 201209, end: 20150101
  10. ACETAMINOPHEN [Suspect]
     Active Substance: ACETAMINOPHEN
     Indication: Product used for unknown indication
     Dosage: UNK
     Route: 065
  11. SKENAN [Suspect]
     Active Substance: MORPHINE SULFATE
     Indication: Product used for unknown indication
     Dosage: 40 MG, 2X/DAY
     Route: 048

REACTIONS (1)
  - Hepatic cytolysis [Recovered/Resolved]

NARRATIVE: CASE EVENT DATE: 20150323
